FAERS Safety Report 9838938 (Version 2)
Quarter: 2014Q3

REPORT INFORMATION
  Report Type: Spontaneous
  Country: US (occurrence: US)
  Receive Date: 20140123
  Receipt Date: 20140728
  Transmission Date: 20150326
  Serious: Yes (Hospitalization)
  Sender: FDA-Public Use
  Company Number: US-009507513-1401USA010048

PATIENT
  Sex: Female
  Weight: 76.64 kg

DRUGS (1)
  1. NUVARING [Suspect]
     Active Substance: ETHINYL ESTRADIOL\ETONOGESTREL
     Indication: CONTRACEPTION
     Dosage: UNK
     Route: 067
     Dates: end: 200806

REACTIONS (8)
  - Anorectal cellulitis [Recovering/Resolving]
  - Ligament rupture [Unknown]
  - Arthroscopy [Unknown]
  - Deep vein thrombosis [Recovering/Resolving]
  - Thrombophlebitis superficial [Unknown]
  - Loop electrosurgical excision procedure [Unknown]
  - Limb injury [Unknown]
  - Cervix disorder [Unknown]

NARRATIVE: CASE EVENT DATE: 200710
